FAERS Safety Report 9189445 (Version 1)
Quarter: 2013Q1

REPORT INFORMATION
  Report Type: Spontaneous
  Country: US (occurrence: None)
  Receive Date: 20130322
  Receipt Date: 20130322
  Transmission Date: 20140127
  Serious: Yes (Life-Threatening, Hospitalization)
  Sender: FDA-Public Use
  Company Number: None

PATIENT
  Age: 69 Year
  Sex: Male
  Weight: 79 kg

DRUGS (1)
  1. FERAHEME [Suspect]
     Indication: ANAEMIA
     Dosage: 510 MG ONE TIME IV
     Route: 042
     Dates: start: 20130319

REACTIONS (5)
  - Seizure like phenomena [None]
  - Flushing [None]
  - Unresponsive to stimuli [None]
  - Restlessness [None]
  - Dizziness [None]
